FAERS Safety Report 8130087-4 (Version None)
Quarter: 2012Q1

REPORT INFORMATION
  Report Type: 
  Country: None (occurrence: None)
  Receive Date: 20120210
  Receipt Date: 20120206
  Transmission Date: 20120608
  Serious: Yes (Hospitalization, Other)
  Sender: FDA-Public Use
  Company Number: FI-PFIZER INC-2011281290

PATIENT
  Age: 54 Year
  Sex: Female

DRUGS (9)
  1. DUACT [Concomitant]
     Indication: RHINITIS ALLERGIC
     Dosage: OCCASIONALLY
  2. LIPITOR [Suspect]
     Dosage: 10 MG, 1X/DAY IN THE EVENINGS
     Dates: start: 20060718, end: 20070101
  3. NEXIUM [Concomitant]
     Indication: DYSPEPSIA
     Dosage: 40 MG, OCCASIONALLY
  4. LIPITOR [Suspect]
     Dosage: 10 MG, 1X/DAY, IN THE EVENING
     Dates: start: 20030101, end: 20040101
  5. RAMIPRIL [Suspect]
     Dosage: 5 MG, UNK
     Dates: start: 20030405, end: 20030101
  6. LIPITOR [Suspect]
     Dosage: 20 MG, 1X/DAY, IN THE EVENING
     Dates: start: 20040101, end: 20060717
  7. LIPITOR [Suspect]
     Dosage: 10 MG, 1X/DAY, IN THE EVENING
     Route: 048
     Dates: start: 20110701, end: 20110927
  8. SIMVASTATIN [Suspect]
     Dosage: 20 MG, UNK
     Dates: start: 20070515, end: 20070101
  9. LOSARTAN POTASSIUM AND HYDROCHLOROTHIAZIDE [Concomitant]
     Dosage: 50 MG/12.5 MG, IN THE MORNING
     Dates: start: 20030101

REACTIONS (25)
  - DIAPHRAGMATIC DISORDER [None]
  - CARDIAC DISORDER [None]
  - CONSTIPATION [None]
  - AMYLASE INCREASED [None]
  - MUSCULOSKELETAL PAIN [None]
  - RHINITIS ALLERGIC [None]
  - HEPATIC ENZYME INCREASED [None]
  - HEPATIC STEATOSIS [None]
  - HEADACHE [None]
  - BLOOD CHOLESTEROL INCREASED [None]
  - ABDOMINAL PAIN [None]
  - C-REACTIVE PROTEIN INCREASED [None]
  - THYMUS DISORDER [None]
  - TOXICITY TO VARIOUS AGENTS [None]
  - CHEST PAIN [None]
  - ABDOMINAL PAIN UPPER [None]
  - WHITE BLOOD CELL COUNT INCREASED [None]
  - FATIGUE [None]
  - VOMITING [None]
  - SYNOVIAL RUPTURE [None]
  - PNEUMONIA [None]
  - LYMPH NODE PAIN [None]
  - CHOLANGITIS [None]
  - MUSCLE SPASMS [None]
  - HYPERTENSION [None]
